FAERS Safety Report 24027276 (Version 1)
Quarter: 2024Q2

REPORT INFORMATION
  Report Type: Spontaneous
  Country: JP (occurrence: JP)
  Receive Date: 20240628
  Receipt Date: 20240628
  Transmission Date: 20240716
  Serious: Yes (Other)
  Sender: FDA-Public Use
  Company Number: JP-ORGANON-O2304JPN000219J

PATIENT
  Sex: Male

DRUGS (1)
  1. DESLORATADINE [Suspect]
     Active Substance: DESLORATADINE
     Indication: Hypersensitivity
     Dosage: UNK, 5 OR 6 YEARS OF USE
     Route: 048

REACTIONS (3)
  - Pancreatitis chronic [Unknown]
  - Aspartate aminotransferase abnormal [Unknown]
  - Hepatic function abnormal [Unknown]
